FAERS Safety Report 13156422 (Version 1)
Quarter: 2017Q1

REPORT INFORMATION
  Report Type: Spontaneous
  Country: ES (occurrence: ES)
  Receive Date: 20170126
  Receipt Date: 20170126
  Transmission Date: 20170428
  Serious: Yes (Hospitalization)
  Sender: FDA-Public Use
  Company Number: ES-G+W LABS-GW2017ES000030

PATIENT

DRUGS (2)
  1. MESALAMINE. [Suspect]
     Active Substance: MESALAMINE
     Indication: CROHN^S DISEASE
     Dosage: 1 G, EVERY 12 HOURS
     Route: 065
  2. BUDESONIDE. [Suspect]
     Active Substance: BUDESONIDE
     Indication: CROHN^S DISEASE
     Dosage: 3 MG, QD
     Route: 065

REACTIONS (1)
  - Myocarditis [Recovered/Resolved]
